FAERS Safety Report 23408765 (Version 4)
Quarter: 2025Q2

REPORT INFORMATION
  Report Type: Report from Study
  Country: CA (occurrence: CA)
  Receive Date: 20240117
  Receipt Date: 20250403
  Transmission Date: 20250717
  Serious: Yes (Other)
  Sender: JOHNSON AND JOHNSON
  Company Number: CA-JNJFOC-20240131492

PATIENT
  Age: 51 Year
  Sex: Male
  Weight: 112.49 kg

DRUGS (2)
  1. SIMPONI [Suspect]
     Active Substance: GOLIMUMAB
     Indication: Ankylosing spondylitis
     Dosage: FREQUENCY ALSO REPORTED AS 28 DAYS
     Route: 058
     Dates: start: 20230222
  2. SIMPONI [Suspect]
     Active Substance: GOLIMUMAB
     Dosage: FREQUENCY ALSO REPORTED AS 28 DAYS
     Route: 041
     Dates: start: 20250226

REACTIONS (2)
  - Renal cancer [Recovering/Resolving]
  - Headache [Not Recovered/Not Resolved]

NARRATIVE: CASE EVENT DATE: 20250327
